FAERS Safety Report 10341310 (Version 2)
Quarter: 2014Q3

REPORT INFORMATION
  Report Type: Report from Study
  Country: MX (occurrence: MX)
  Receive Date: 20140725
  Receipt Date: 20140725
  Transmission Date: 20150326
  Serious: Yes (Death)
  Sender: FDA-Public Use
  Company Number: MX-ORION CORPORATION ORION PHARMA-ENTC2012-0539

PATIENT
  Age: 90 Year
  Sex: Female

DRUGS (3)
  1. CAPTOPRIL. [Concomitant]
     Active Substance: CAPTOPRIL
     Indication: HYPERTENSION
     Route: 065
     Dates: start: 2010
  2. LEVOTHYROXINE [Concomitant]
     Active Substance: LEVOTHYROXINE
     Indication: THYROID CANCER
     Route: 065
     Dates: start: 2009
  3. STALEVO [Suspect]
     Active Substance: CARBIDOPA\ENTACAPONE\LEVODOPA
     Indication: PARKINSON^S DISEASE
     Dosage: STRENGTH: 50/12.5/200 MG
     Route: 048
     Dates: start: 20101124

REACTIONS (9)
  - Restlessness [Unknown]
  - Respiratory arrest [Fatal]
  - Fatigue [Unknown]
  - Body temperature increased [Unknown]
  - Constipation [Unknown]
  - Flank pain [Unknown]
  - Blunted affect [Unknown]
  - Oral fungal infection [Unknown]
  - Diet refusal [Unknown]

NARRATIVE: CASE EVENT DATE: 20120901
